FAERS Safety Report 17226750 (Version 1)
Quarter: 2020Q1

REPORT INFORMATION
  Report Type: Spontaneous
  Country: SE (occurrence: SE)
  Receive Date: 20200102
  Receipt Date: 20200102
  Transmission Date: 20200409
  Serious: Yes (Disabling)
  Sender: FDA-Public Use
  Company Number: SE-ASTRAZENECA-2019SF92188

PATIENT
  Age: 71 Year
  Sex: Female
  Weight: 80 kg

DRUGS (9)
  1. NAPROXEN. [Concomitant]
     Active Substance: NAPROXEN
  2. FASLODEX [Suspect]
     Active Substance: FULVESTRANT
     Indication: BONE CANCER
     Dosage: 500.0MG UNKNOWN
     Route: 030
     Dates: start: 2016, end: 2017
  3. CALCICHEW-D3 [Concomitant]
     Active Substance: CALCIUM\CHOLECALCIFEROL
  4. PANODIL [Concomitant]
     Active Substance: ACETAMINOPHEN
  5. FASLODEX [Suspect]
     Active Substance: FULVESTRANT
     Indication: METASTASIS
     Dosage: 500.0MG UNKNOWN
     Route: 030
     Dates: start: 2016, end: 2017
  6. MAGNESIUM [Concomitant]
     Active Substance: MAGNESIUM
  7. ALLOPURINOL. [Concomitant]
     Active Substance: ALLOPURINOL
     Dates: start: 2013
  8. FASLODEX [Suspect]
     Active Substance: FULVESTRANT
     Indication: BREAST CANCER
     Dosage: 500.0MG UNKNOWN
     Route: 030
     Dates: start: 2016, end: 2017
  9. ZOMETA [Concomitant]
     Active Substance: ZOLEDRONIC ACID
     Dates: start: 201503

REACTIONS (9)
  - Pelvic pain [Recovering/Resolving]
  - Balance disorder [Recovering/Resolving]
  - Neuropathy peripheral [Recovering/Resolving]
  - Neuralgia [Recovering/Resolving]
  - Arthralgia [Recovering/Resolving]
  - Inflammation [Recovering/Resolving]
  - Hypoaesthesia [Recovering/Resolving]
  - Sciatica [Recovering/Resolving]
  - Tenderness [Recovering/Resolving]

NARRATIVE: CASE EVENT DATE: 201702
